FAERS Safety Report 6529507-8 (Version None)
Quarter: 2010Q1

REPORT INFORMATION
  Report Type: 
  Country: None (occurrence: None)
  Receive Date: 20100104
  Receipt Date: 20091221
  Transmission Date: 20100710
  Serious: Yes (Other)
  Sender: FDA-Public Use
  Company Number: JPI-P-009455

PATIENT

DRUGS (2)
  1. LUVOX [Suspect]
     Indication: DRUG EXPOSURE DURING PREGNANCY
     Dosage: TRANSPLACENTAL
     Route: 064
     Dates: end: 20091201
  2. ETHYL LOFLAZEPATE [Concomitant]

REACTIONS (2)
  - HYPOKINESIA NEONATAL [None]
  - MATERNAL DRUGS AFFECTING FOETUS [None]
